FAERS Safety Report 15969155 (Version 2)
Quarter: 2019Q1

REPORT INFORMATION
  Report Type: Spontaneous
  Country: GR (occurrence: GR)
  Receive Date: 20190215
  Receipt Date: 20190222
  Transmission Date: 20190418
  Serious: Yes (Life-Threatening, Hospitalization, Other)
  Sender: FDA-Public Use
  Company Number: GR-PURDUE-GBR-2019-0064214

PATIENT
  Sex: Male

DRUGS (1)
  1. NON-PMN BUPRENORPHINE [Suspect]
     Active Substance: BUPRENORPHINE
     Indication: REHABILITATION THERAPY
     Dosage: UNK
     Route: 064

REACTIONS (3)
  - Bradycardia foetal [Recovered/Resolved]
  - Drug withdrawal syndrome neonatal [Recovered/Resolved]
  - Foetal exposure during pregnancy [Recovered/Resolved]
